FAERS Safety Report 13514578 (Version 1)
Quarter: 2017Q2

REPORT INFORMATION
  Report Type: Spontaneous
  Country: DE (occurrence: DE)
  Receive Date: 20170504
  Receipt Date: 20170504
  Transmission Date: 20170830
  Serious: Yes (Other)
  Sender: FDA-Public Use
  Company Number: DE-009507513-1704DEU012130

PATIENT
  Age: 55 Year
  Sex: Male

DRUGS (3)
  1. SIMVASTATIN. [Suspect]
     Active Substance: SIMVASTATIN
     Indication: HYPERCHOLESTEROLAEMIA
     Dosage: 80 MG, UNK
     Route: 048
     Dates: start: 1993
  2. TREDAPTIVE [Suspect]
     Active Substance: LAROPIPRANT\NICOTINIC ACID HYDRAZIDE
     Indication: HYPERCHOLESTEROLAEMIA
     Dosage: UNK
  3. TREDAPTIVE [Suspect]
     Active Substance: LAROPIPRANT\NICOTINIC ACID HYDRAZIDE
     Dosage: 200 MG, QD

REACTIONS (3)
  - Vascular occlusion [Not Recovered/Not Resolved]
  - Lipoprotein (a) increased [Not Recovered/Not Resolved]
  - Adverse event [Unknown]
